FAERS Safety Report 20096019 (Version 1)
Quarter: 2021Q4

REPORT INFORMATION
  Report Type: Spontaneous
  Country: AT (occurrence: AT)
  Receive Date: 20211122
  Receipt Date: 20211122
  Transmission Date: 20220304
  Serious: Yes (Other)
  Sender: FDA-Public Use
  Company Number: None

PATIENT
  Age: 62 Year
  Sex: Female
  Weight: 54.5 kg

DRUGS (13)
  1. SPRAVATO [Suspect]
     Active Substance: ESKETAMINE
     Indication: Depression
     Dosage: 2X28MG. 3X28MG, NASAL / 2X
     Dates: start: 20210907, end: 20210928
  2. AMITRIPTYLINE [Concomitant]
     Active Substance: AMITRIPTYLINE
     Dosage: 1 X 75MG
  3. CANDESARTAN [Concomitant]
     Active Substance: CANDESARTAN
     Dosage: 2 X 4MG
  4. ATORVASTATIN [Concomitant]
     Active Substance: ATORVASTATIN
     Dosage: 10MG
  5. SERTRALINE [Concomitant]
     Active Substance: SERTRALINE HYDROCHLORIDE
     Dosage: 1 X 200MG
  6. ABILIFY [Concomitant]
     Active Substance: ARIPIPRAZOLE
     Dosage: 1 X 10MG
  7. ASPIRIN [Concomitant]
     Active Substance: ASPIRIN
     Dosage: 1 X 80MG
  8. BISOPROLOL FUMARATE [Concomitant]
     Active Substance: BISOPROLOL FUMARATE
     Dosage: 1 X 3,75MG
  9. ZOLPIDEM TARTRATE [Concomitant]
     Active Substance: ZOLPIDEM TARTRATE
     Dosage: 1 X 10MG
  10. TRAZODONE HYDROCHLORIDE [Concomitant]
     Active Substance: TRAZODONE HYDROCHLORIDE
     Dosage: 1 X 350MG
  11. SEROQUEL [Concomitant]
     Active Substance: QUETIAPINE FUMARATE
     Dosage: 2 X 100MG
  12. LYRICA [Concomitant]
     Active Substance: PREGABALIN
     Dosage: 3 X 100MG
  13. PANTOPRAZOLE SODIUM [Concomitant]
     Active Substance: PANTOPRAZOLE SODIUM
     Dosage: 60MG

REACTIONS (4)
  - Anxiety [Recovered/Resolved]
  - Dizziness [Recovered/Resolved]
  - Hypertension [Recovered/Resolved]
  - Hallucination [Recovered/Resolved]

NARRATIVE: CASE EVENT DATE: 20210928
